FAERS Safety Report 5391282-0 (Version None)
Quarter: 2007Q3

REPORT INFORMATION
  Report Type: 
  Country: None (occurrence: None)
  Receive Date: 20070719
  Receipt Date: 20070709
  Transmission Date: 20080115
  Serious: Yes (Hospitalization, Other)
  Sender: FDA-Public Use
  Company Number: US-JNJFOC-20070401516

PATIENT
  Sex: Male
  Weight: 66.23 kg

DRUGS (4)
  1. REMICADE [Suspect]
     Route: 042
  2. REMICADE [Suspect]
     Indication: CROHN'S DISEASE
     Dosage: FOR 2 TO 3 YEARS
     Route: 042
  3. SOLU-MEDROL [Concomitant]
     Route: 042
  4. ZYRTEC [Concomitant]
     Route: 048

REACTIONS (3)
  - MENTAL DISORDER [None]
  - MYCOBACTERIUM AVIUM COMPLEX INFECTION [None]
  - TUBERCULOSIS [None]
